FAERS Safety Report 10155954 (Version 1)
Quarter: 2014Q2

REPORT INFORMATION
  Report Type: Spontaneous
  Country: GB (occurrence: GB)
  Receive Date: 20140506
  Receipt Date: 20140506
  Transmission Date: 20141212
  Serious: Yes (Other)
  Sender: FDA-Public Use
  Company Number: GB-MYLANLABS-2014S1009731

PATIENT
  Age: 80 Year
  Sex: Male

DRUGS (1)
  1. LORATADINE [Suspect]
     Route: 065

REACTIONS (6)
  - Tunnel vision [Recovered/Resolved]
  - Blood pressure decreased [Recovered/Resolved]
  - Heart rate increased [Recovered/Resolved]
  - Malaise [Recovered/Resolved]
  - Syncope [Recovered/Resolved]
  - Nausea [Recovered/Resolved]
